FAERS Safety Report 14211679 (Version 1)
Quarter: 2017Q4

REPORT INFORMATION
  Report Type: Spontaneous
  Country: US (occurrence: None)
  Receive Date: 20171121
  Receipt Date: 20171121
  Transmission Date: 20180321
  Serious: Yes (Hospitalization)
  Sender: FDA-Public Use
  Company Number: None

PATIENT
  Age: 72 Year
  Sex: Male
  Weight: 95.3 kg

DRUGS (1)
  1. DECITABINE (5-AZA 2^-DEOXYCYTIDINE) [Suspect]
     Active Substance: DECITABINE
     Dates: end: 20171021

REACTIONS (5)
  - Pain [None]
  - Arthralgia [None]
  - Therapy cessation [None]
  - Chills [None]
  - Fatigue [None]

NARRATIVE: CASE EVENT DATE: 20171114
